FAERS Safety Report 5441633-3 (Version None)
Quarter: 2007Q3

REPORT INFORMATION
  Report Type: 
  Country: None (occurrence: None)
  Receive Date: 20070904
  Receipt Date: 20070821
  Transmission Date: 20080115
  Serious: Yes (Death, Life-Threatening, Hospitalization, Other)
  Sender: FDA-Public Use
  Company Number: ZA-NOVOPROD-266226

PATIENT

DRUGS (12)
  1. NOVOSEVEN [Suspect]
     Indication: TRAUMATIC HAEMORRHAGE
     Dosage: 3 DOSES
     Route: 042
     Dates: start: 20070801, end: 20070802
  2. SOLU-CORTEF [Concomitant]
     Indication: RESPIRATORY THERAPY
     Dosage: 100 MG, UNK
     Route: 042
     Dates: start: 20070802
  3. MORPHINE [Concomitant]
     Indication: PAIN MANAGEMENT
     Dosage: 1-4 MG
     Route: 042
     Dates: start: 20070802
  4. DORMICUM                           /00036201/ [Concomitant]
     Indication: SEDATION
     Dosage: 1-4 MG, UNK
     Route: 042
     Dates: start: 20070802
  5. CIMETIDINE HCL [Concomitant]
     Indication: PROPHYLAXIS
     Dosage: 200 MG, UNK
     Route: 042
     Dates: start: 20070802
  6. ADRENALINE                         /00003901/ [Concomitant]
     Dosage: .1 MG/KG, UNK
     Route: 042
     Dates: start: 20070802
  7. ADRENALINE                         /00003901/ [Concomitant]
     Dosage: 0.22 MG/KG
     Route: 042
     Dates: start: 20070802
  8. AUGMENTIN '125' [Concomitant]
     Indication: PROPHYLAXIS
     Dosage: 1.2 G, QD
     Route: 042
     Dates: start: 20070802, end: 20070803
  9. PERFALGAN [Concomitant]
     Indication: PYREXIA
     Dosage: 1 G, QD
     Route: 042
     Dates: start: 20070802, end: 20070804
  10. DOBUTREX [Concomitant]
     Dosage: 5 MG/KG
     Route: 042
     Dates: start: 20070802
  11. SOLU-CORTEF [Concomitant]
     Indication: RESPIRATORY DISORDER
     Dosage: 100 MG, UNK
     Route: 042
     Dates: start: 20070802
  12. ENOXAPARIN SODIUM [Concomitant]
     Indication: COAGULOPATHY
     Dosage: 40 MG, QD
     Route: 058
     Dates: start: 20070805, end: 20070812

REACTIONS (4)
  - ANASTOMOTIC LEAK [None]
  - INTRA-ABDOMINAL HAEMORRHAGE [None]
  - RENAL FAILURE [None]
  - SEPSIS [None]
